FAERS Safety Report 5497133-8 (Version None)
Quarter: 2007Q4

REPORT INFORMATION
  Report Type: 
  Country: None (occurrence: None)
  Receive Date: 20071025
  Receipt Date: 20071015
  Transmission Date: 20080405
  Serious: Yes (Hospitalization)
  Sender: FDA-Public Use
  Company Number: US-AMGEN-STX218399

PATIENT
  Sex: Male
  Weight: 71.3 kg

DRUGS (11)
  1. ENBREL [Suspect]
     Indication: RHEUMATOID ARTHRITIS
     Route: 058
     Dates: start: 20051009, end: 20070326
  2. PREDNISONE [Concomitant]
     Dates: start: 20050909, end: 20070326
  3. ALLEGRA [Concomitant]
  4. NORVASC [Concomitant]
  5. LIPITOR [Concomitant]
  6. METHOTREXATE [Concomitant]
     Dates: start: 20050909, end: 20070326
  7. FOLIC ACID [Concomitant]
     Dates: start: 20050909, end: 20070326
  8. SOTALOL HYDROCHLORIDE [Concomitant]
  9. COREG [Concomitant]
  10. ALPRAZOLAM [Concomitant]
  11. DIOVAN [Concomitant]

REACTIONS (1)
  - TUBERCULOSIS [None]
